FAERS Safety Report 16920662 (Version 3)
Quarter: 2020Q1

REPORT INFORMATION
  Report Type: Report from Study
  Country: CA (occurrence: CA)
  Receive Date: 20191015
  Receipt Date: 20200108
  Transmission Date: 20200409
  Serious: Yes (Other)
  Sender: FDA-Public Use
  Company Number: CA-JNJFOC-20191010212

PATIENT
  Age: 10 Year
  Sex: Male
  Weight: 32 kg

DRUGS (1)
  1. REMICADE [Suspect]
     Active Substance: INFLIXIMAB
     Indication: CROHN^S DISEASE
     Route: 042

REACTIONS (11)
  - Diarrhoea [Unknown]
  - Skin irritation [Unknown]
  - Abdominal distension [Unknown]
  - Abdominal pain [Recovering/Resolving]
  - Abnormal faeces [Unknown]
  - Splinter [Recovering/Resolving]
  - Fatigue [Unknown]
  - Product use issue [Unknown]
  - Haematochezia [Unknown]
  - Cellulitis [Recovering/Resolving]
  - Off label use [Unknown]

NARRATIVE: CASE EVENT DATE: 20190825
